FAERS Safety Report 5630100-X (Version None)
Quarter: 2008Q1

REPORT INFORMATION
  Report Type: 
  Country: None (occurrence: None)
  Receive Date: 20080218
  Receipt Date: 20080208
  Transmission Date: 20080703
  Serious: Yes (Other)
  Sender: FDA-Public Use
  Company Number: PHNU2008DE00889

PATIENT
  Sex: Male
  Weight: 111 kg

DRUGS (7)
  1. AREDIA [Suspect]
     Indication: PLASMACYTOMA
     Dosage: 90 MG, QMO
     Route: 042
     Dates: start: 20011201, end: 20020201
  2. ZOMETA [Suspect]
     Indication: MULTIPLE MYELOMA
     Dosage: 4 MG, QMO
     Route: 042
     Dates: start: 20030701, end: 20061101
  3. DEXAMETHASONE TAB [Concomitant]
     Dosage: 20 MG ON DAY 1,4,8,11 EVERY 22 DAYS
     Route: 065
     Dates: start: 20051201, end: 20060401
  4. DEXAMETHASONE TAB [Concomitant]
     Dosage: 40 MG ON DAY 1 TO 4, 17 - 20 EVERY 36 DAYS
     Route: 065
     Dates: start: 20061101, end: 20070401
  5. DEXAMETHASONE TAB [Concomitant]
     Dosage: 20 MG, UNK
     Route: 065
     Dates: start: 20070601, end: 20070801
  6. VELCADE [Concomitant]
     Dosage: 30 MG ON DAY 1,4,8,11 EVERY 22 DAYS
     Route: 065
     Dates: start: 20051201, end: 20060401
  7. BENDAMUSTINE [Concomitant]
     Route: 065
     Dates: start: 20070601, end: 20070801

REACTIONS (3)
  - OSTEOMYELITIS [None]
  - OSTEONECROSIS [None]
  - TOOTH EXTRACTION [None]
